FAERS Safety Report 11684133 (Version 3)
Quarter: 2015Q4

REPORT INFORMATION
  Report Type: Spontaneous
  Country: US (occurrence: US)
  Receive Date: 20151029
  Receipt Date: 20151210
  Transmission Date: 20160304
  Serious: No
  Sender: FDA-Public Use
  Company Number: US-BAYER-2015-449243

PATIENT
  Sex: Female

DRUGS (1)
  1. CLARITIN REDITABS [Suspect]
     Active Substance: LORATADINE
     Route: 048

REACTIONS (2)
  - Wrong technique in product usage process [None]
  - Product physical consistency issue [None]
